FAERS Safety Report 9727609 (Version 1)
Quarter: 2013Q4

REPORT INFORMATION
  Report Type: Spontaneous
  Country: US (occurrence: US)
  Receive Date: 20131203
  Receipt Date: 20131203
  Transmission Date: 20140711
  Serious: Yes (Hospitalization)
  Sender: FDA-Public Use
  Company Number: US-BAYER-2013-144568

PATIENT
  Age: 53 Year
  Sex: Female
  Weight: 60.32 kg

DRUGS (5)
  1. YAZ [Suspect]
  2. GIANVI [Suspect]
  3. CEPHALEXIN [Concomitant]
     Dosage: 500 MG, UNK
     Route: 048
  4. VITAMIN B COMPLEX [Concomitant]
     Route: 048
  5. CALCIUM [Concomitant]
     Dosage: 500 MG, UNK
     Route: 048

REACTIONS (1)
  - Deep vein thrombosis [Recovered/Resolved]
